FAERS Safety Report 4999039-7 (Version None)
Quarter: 2006Q2

REPORT INFORMATION
  Report Type: 
  Country: None (occurrence: None)
  Receive Date: 20060509
  Receipt Date: 20060418
  Transmission Date: 20061013
  Serious: Yes (Other)
  Sender: FDA-Public Use
  Company Number: US200604003028

PATIENT
  Age: 43 Year
  Sex: Male

DRUGS (2)
  1. FORTEO [Suspect]
     Indication: OSTEOPOROSIS
     Dates: start: 20060201
  2. HUMIRA [Concomitant]

REACTIONS (8)
  - FALL [None]
  - INJECTION SITE BRUISING [None]
  - MUSCLE SPASMS [None]
  - NIGHT SWEATS [None]
  - PAIN IN EXTREMITY [None]
  - PHARMACEUTICAL PRODUCT COMPLAINT [None]
  - POOR QUALITY SLEEP [None]
  - UPPER LIMB FRACTURE [None]
